FAERS Safety Report 17080754 (Version 3)
Quarter: 2020Q1

REPORT INFORMATION
  Report Type: Spontaneous
  Country: US (occurrence: JP)
  Receive Date: 20191127
  Receipt Date: 20200116
  Transmission Date: 20200409
  Serious: Yes (Hospitalization)
  Sender: FDA-Public Use
  Company Number: US-SUNOVION-2019SUN005197

PATIENT
  Sex: Male

DRUGS (2)
  1. INDACATEROL [Suspect]
     Active Substance: INDACATEROL
     Dosage: 150 MG,UNK
     Route: 055
     Dates: start: 20190826
  2. INDACATEROL [Suspect]
     Active Substance: INDACATEROL
     Indication: CHRONIC OBSTRUCTIVE PULMONARY DISEASE
     Dosage: 150 MG,UNK
     Route: 055
     Dates: start: 201507

REACTIONS (3)
  - Concomitant disease aggravated [Unknown]
  - Alcoholism [Unknown]
  - Expired product administered [Unknown]

NARRATIVE: CASE EVENT DATE: 20190826
